FAERS Safety Report 13695062 (Version 5)
Quarter: 2017Q3

REPORT INFORMATION
  Report Type: Spontaneous
  Country: JP (occurrence: JP)
  Receive Date: 20170627
  Receipt Date: 20170807
  Transmission Date: 20171127
  Serious: Yes (Death)
  Sender: FDA-Public Use
  Company Number: JP-JNJFOC-20170622552

PATIENT
  Age: 52 Year
  Sex: Female
  Weight: 70 kg

DRUGS (19)
  1. XEPLION [Suspect]
     Active Substance: PALIPERIDONE PALMITATE
     Indication: SCHIZOPHRENIA
     Dosage: RIGHT GLUTEUS MUSCLE
     Route: 030
     Dates: start: 20150821, end: 20150821
  2. XEPLION [Suspect]
     Active Substance: PALIPERIDONE PALMITATE
     Indication: SCHIZOPHRENIA
     Dosage: LEFT GLUTEUS MUSCLE
     Route: 030
     Dates: start: 20151113, end: 20151113
  3. XEPLION [Suspect]
     Active Substance: PALIPERIDONE PALMITATE
     Indication: SCHIZOPHRENIA
     Dosage: RIGHT GLUTEUS MUSCLE
     Route: 030
     Dates: start: 20160401, end: 20160401
  4. XEPLION [Suspect]
     Active Substance: PALIPERIDONE PALMITATE
     Indication: SCHIZOPHRENIA
     Dosage: LEFT GLUTEUS MUSCLE
     Route: 030
     Dates: start: 20150918, end: 20150918
  5. XEPLION [Suspect]
     Active Substance: PALIPERIDONE PALMITATE
     Indication: SCHIZOPHRENIA
     Dosage: RIGHT GLUTEUS MUSCLE
     Route: 030
     Dates: start: 20150626, end: 20150626
  6. XEPLION [Suspect]
     Active Substance: PALIPERIDONE PALMITATE
     Indication: SCHIZOPHRENIA
     Dosage: RIGHT GLUTEUS MUSCLE
     Route: 030
     Dates: start: 20151016, end: 20151016
  7. XEPLION [Suspect]
     Active Substance: PALIPERIDONE PALMITATE
     Indication: SCHIZOPHRENIA
     Dosage: RIGHT GLUTEUS MUSCLE
     Route: 030
     Dates: start: 20151211, end: 20151211
  8. XEPLION [Suspect]
     Active Substance: PALIPERIDONE PALMITATE
     Indication: SCHIZOPHRENIA
     Dosage: RIGHT DELTOID MUSCLE
     Route: 030
     Dates: start: 20150522, end: 20150522
  9. FLUNITRAZEPAM [Concomitant]
     Active Substance: FLUNITRAZEPAM
     Indication: INSOMNIA
     Route: 048
     Dates: start: 20160108, end: 20160910
  10. WYPAX [Concomitant]
     Active Substance: LORAZEPAM
     Indication: ANXIETY
     Dosage: AS NECESSARY
     Route: 048
     Dates: start: 20160108, end: 20160910
  11. WYPAX [Concomitant]
     Active Substance: LORAZEPAM
     Indication: IRRITABILITY
     Dosage: AS NECESSARY
     Route: 048
     Dates: start: 20160108, end: 20160910
  12. XEPLION [Suspect]
     Active Substance: PALIPERIDONE PALMITATE
     Indication: SCHIZOPHRENIA
     Dosage: LEFT GLUTEUS MUSCLE
     Route: 030
     Dates: start: 20160304, end: 20160304
  13. XEPLION [Suspect]
     Active Substance: PALIPERIDONE PALMITATE
     Indication: SCHIZOPHRENIA
     Dosage: LEFT GLUTEUS MUSCLE
     Route: 030
     Dates: start: 20150724, end: 20150724
  14. LENDORMIN [Concomitant]
     Active Substance: BROTIZOLAM
     Indication: INSOMNIA
     Route: 048
     Dates: start: 20141212, end: 20160910
  15. XEPLION [Suspect]
     Active Substance: PALIPERIDONE PALMITATE
     Indication: SCHIZOPHRENIA
     Dosage: LEFT GLUTEUS MUSCLE
     Route: 030
     Dates: start: 20160422, end: 20160422
  16. XEPLION [Suspect]
     Active Substance: PALIPERIDONE PALMITATE
     Indication: SCHIZOPHRENIA
     Route: 030
     Dates: start: 20160529, end: 20160910
  17. XEPLION [Suspect]
     Active Substance: PALIPERIDONE PALMITATE
     Indication: SCHIZOPHRENIA
     Dosage: LEFT GLUTEUS MUSCLE
     Route: 030
     Dates: start: 20150529, end: 20150529
  18. XEPLION [Suspect]
     Active Substance: PALIPERIDONE PALMITATE
     Indication: SCHIZOPHRENIA
     Dosage: RIGHT GLUTEUS MUSCLE
     Route: 030
     Dates: start: 20160205, end: 20160205
  19. XEPLION [Suspect]
     Active Substance: PALIPERIDONE PALMITATE
     Indication: SCHIZOPHRENIA
     Dosage: LEFT GLUTEAL MUSCLE
     Route: 030
     Dates: start: 20160108, end: 20160108

REACTIONS (4)
  - Off label use [Unknown]
  - Drug administered at inappropriate site [Unknown]
  - Inappropriate schedule of drug administration [Unknown]
  - Road traffic accident [Fatal]

NARRATIVE: CASE EVENT DATE: 20150529
